FAERS Safety Report 5195563-5 (Version None)
Quarter: 2007Q1

REPORT INFORMATION
  Report Type: 
  Country: None (occurrence: None)
  Receive Date: 20070102
  Receipt Date: 20061211
  Transmission Date: 20070707
  Serious: Yes (Death)
  Sender: FDA-Public Use
  Company Number: IT-ELI_LILLY_AND_COMPANY-IT200612004591

PATIENT
  Age: 36 Year
  Sex: Male
  Weight: 91 kg

DRUGS (3)
  1. ZYPREXA [Suspect]
     Dosage: 20 MG, DAILY (1/D)
     Route: 048
     Dates: start: 20060719
  2. SEREUPIN [Concomitant]
     Dosage: 20 MG, 2/D
     Route: 048
     Dates: start: 20050323
  3. GARDENALE [Concomitant]
     Dosage: 100 MG, DAILY (1/D)
     Route: 048
     Dates: start: 20050323

REACTIONS (1)
  - COMPLETED SUICIDE [None]
